FAERS Safety Report 13120700 (Version 1)
Quarter: 2017Q1

REPORT INFORMATION
  Report Type: Spontaneous
  Country: CA (occurrence: CA)
  Receive Date: 20170117
  Receipt Date: 20170117
  Transmission Date: 20170428
  Serious: Yes (Other)
  Sender: FDA-Public Use
  Company Number: CA-JNJFOC-20170104379

PATIENT
  Sex: Female

DRUGS (1)
  1. TYLENOL EXTRA STRENGTH NIGHT TIME CAPLETS (CANADA) [Suspect]
     Active Substance: ACETAMINOPHEN\DIPHENHYDRAMINE HYDROCHLORIDE
     Indication: PAIN
     Route: 065

REACTIONS (1)
  - Rheumatoid arthritis [Unknown]
